FAERS Safety Report 23627267 (Version 1)
Quarter: 2024Q1

REPORT INFORMATION
  Report Type: Report from Study
  Country: MX (occurrence: MX)
  Receive Date: 20240313
  Receipt Date: 20240313
  Transmission Date: 20240409
  Serious: Yes (Other)
  Sender: FDA-Public Use
  Company Number: MX-002147023-NVSC2024MX053820

PATIENT
  Sex: Female

DRUGS (1)
  1. HYDROCHLOROTHIAZIDE\VALSARTAN [Suspect]
     Active Substance: HYDROCHLOROTHIAZIDE\VALSARTAN
     Indication: Hypertension
     Dosage: UNK UNK, QD (MORE THAN 25 YEARS AGO)
     Route: 048

REACTIONS (4)
  - Diabetes mellitus [Unknown]
  - Hypertension [Unknown]
  - Malaise [Unknown]
  - Thyroid disorder [Unknown]
